FAERS Safety Report 12147057 (Version 1)
Quarter: 2016Q1

REPORT INFORMATION
  Report Type: Spontaneous
  Country: US (occurrence: US)
  Receive Date: 20160304
  Receipt Date: 20160304
  Transmission Date: 20160526
  Serious: Yes (Hospitalization)
  Sender: FDA-Public Use
  Company Number: US-RB PHARMACEUTICALS LIMITED-RB-081787-2015

PATIENT
  Sex: Male

DRUGS (3)
  1. ZOLOFT P [Concomitant]
     Indication: DEPRESSION
     Dosage: UNK
     Route: 065
     Dates: start: 2014
  2. ANTIDEPRESSANTS [Concomitant]
     Active Substance: UNSPECIFIED INGREDIENT
     Indication: DEPRESSION
     Dosage: UNK
     Route: 065
     Dates: end: 2014
  3. SUBOXONE [Suspect]
     Active Substance: BUPRENORPHINE HYDROCHLORIDE\NALOXONE HYDROCHLORIDE
     Indication: ABDOMINAL PAIN UPPER
     Dosage: UNK, BID
     Route: 060
     Dates: start: 2002, end: 2014

REACTIONS (11)
  - Catatonia [Recovered/Resolved]
  - Thinking abnormal [Recovered/Resolved]
  - Product use issue [Recovered/Resolved]
  - Drug detoxification [Recovered/Resolved]
  - Asthenia [Recovered/Resolved]
  - Memory impairment [Recovered/Resolved]
  - Theft [Recovered/Resolved]
  - Gastrointestinal ulcer [Recovered/Resolved]
  - Off label use [Recovered/Resolved]
  - Affect lability [Recovered/Resolved]
  - Abdominal pain [Recovered/Resolved]

NARRATIVE: CASE EVENT DATE: 2014
